FAERS Safety Report 9998054 (Version 1)
Quarter: 2014Q1

REPORT INFORMATION
  Report Type: Spontaneous
  Country: US (occurrence: None)
  Receive Date: 20140224
  Receipt Date: 20140224
  Transmission Date: 20141002
  Serious: Yes (Hospitalization)
  Sender: FDA-Public Use
  Company Number: PHEH2013US012609

PATIENT
  Age: 27 Year
  Sex: Female

DRUGS (1)
  1. TOBI (TOBRAMYCIN) SOL. AEROSOL METERED DOSE INH [Suspect]
     Indication: CYSTIC FIBROSIS
     Dosage: UNK , INHALATION
     Route: 055

REACTIONS (3)
  - Haemoptysis [None]
  - Dyspnoea [None]
  - Productive cough [None]
